FAERS Safety Report 23486877 (Version 2)
Quarter: 2024Q1

REPORT INFORMATION
  Report Type: Other
  Country: US (occurrence: US)
  Receive Date: 20240206
  Receipt Date: 20240226
  Transmission Date: 20240409
  Serious: Yes (Hospitalization)
  Sender: FDA-Public Use
  Company Number: US-TRAVERE-2024TVT00024

PATIENT
  Sex: Female

DRUGS (1)
  1. FILSPARI [Suspect]
     Active Substance: SPARSENTAN
     Indication: IgA nephropathy
     Dosage: 400 MG
     Route: 048

REACTIONS (5)
  - Influenza [Recovered/Resolved]
  - Blood creatinine increased [Unknown]
  - Abdominal distension [Unknown]
  - Dehydration [Unknown]
  - Urine abnormality [Recovering/Resolving]
